FAERS Safety Report 4889846-3 (Version None)
Quarter: 2006Q1

REPORT INFORMATION
  Report Type: 
  Country: None (occurrence: None)
  Receive Date: 20060124
  Receipt Date: 20051005
  Transmission Date: 20060701
  Serious: Yes (Hospitalization)
  Sender: FDA-Public Use
  Company Number: US-MERCK-0510USA05500

PATIENT
  Age: 60 Year
  Sex: Female
  Weight: 114 kg

DRUGS (14)
  1. VIOXX [Suspect]
     Indication: OSTEOARTHRITIS
     Route: 048
     Dates: start: 19990101, end: 20020901
  2. VIOXX [Suspect]
     Route: 048
     Dates: start: 19990101, end: 20020901
  3. VIOXX [Suspect]
     Indication: BACK PAIN
     Route: 048
     Dates: start: 19990101, end: 20020901
  4. VIOXX [Suspect]
     Route: 048
     Dates: start: 19990101, end: 20020901
  5. DEMADEX [Concomitant]
     Route: 065
  6. POTASSIUM (UNSPECIFIED) [Concomitant]
     Route: 065
  7. PLENDIL [Concomitant]
     Route: 065
  8. ATACAND [Concomitant]
     Route: 065
  9. ALLEGRA [Concomitant]
     Route: 065
  10. GLUCOTROL [Concomitant]
     Route: 065
  11. PREMARIN [Concomitant]
     Route: 065
  12. AMBIEN [Concomitant]
     Route: 065
  13. BECONASE [Concomitant]
     Route: 065
  14. TRANXENE [Concomitant]
     Route: 065

REACTIONS (27)
  - ACCIDENT [None]
  - ARTHRITIS [None]
  - ATRIAL FIBRILLATION [None]
  - CARDIAC FAILURE CONGESTIVE [None]
  - CARDIOVASCULAR DISORDER [None]
  - DIABETES MELLITUS NON-INSULIN-DEPENDENT [None]
  - EMBOLISM [None]
  - ESSENTIAL HYPERTENSION [None]
  - GALLOP RHYTHM PRESENT [None]
  - GASTROOESOPHAGEAL REFLUX DISEASE [None]
  - HYPERCALCAEMIA [None]
  - HYPERTENSIVE HEART DISEASE [None]
  - INTERVERTEBRAL DISC DEGENERATION [None]
  - MERALGIA PARAESTHETICA [None]
  - MYALGIA [None]
  - MYOCARDIAL INFARCTION [None]
  - MYOCLONUS [None]
  - NAUSEA [None]
  - PEPTIC ULCER [None]
  - PULMONARY OEDEMA [None]
  - RHINITIS ALLERGIC [None]
  - SINUS TACHYCARDIA [None]
  - SKIN LACERATION [None]
  - SPONDYLOLISTHESIS [None]
  - URINARY TRACT INFECTION [None]
  - UTERINE DISORDER [None]
  - VAGINAL INFECTION [None]
